FAERS Safety Report 14078861 (Version 1)
Quarter: 2017Q4

REPORT INFORMATION
  Report Type: Spontaneous
  Country: US (occurrence: US)
  Receive Date: 20171012
  Receipt Date: 20171012
  Transmission Date: 20180321
  Serious: Yes (Hospitalization)
  Sender: FDA-Public Use
  Company Number: US-ACELLA PHARMACEUTICALS, LLC-2029773

PATIENT
  Age: 38 Year
  Sex: Female
  Weight: 68.18 kg

DRUGS (4)
  1. NP THYROID 30 [Suspect]
     Active Substance: LEVOTHYROXINE\LIOTHYRONINE
     Indication: THYROID HORMONE REPLACEMENT THERAPY
     Route: 048
     Dates: start: 20170810
  2. VITAMIN D [Concomitant]
     Active Substance: CHOLECALCIFEROL
     Route: 065
  3. PROBIOTIC [Concomitant]
     Active Substance: PROBIOTICS NOS
     Route: 048
  4. CROMOLYN SODIUM. [Concomitant]
     Active Substance: CROMOLYN SODIUM
     Route: 065

REACTIONS (8)
  - Nausea [Not Recovered/Not Resolved]
  - Rash [Not Recovered/Not Resolved]
  - Weight increased [Not Recovered/Not Resolved]
  - Urticaria [Not Recovered/Not Resolved]
  - Diarrhoea [Not Recovered/Not Resolved]
  - Pruritus [Not Recovered/Not Resolved]
  - Migraine [Not Recovered/Not Resolved]
  - Vision blurred [Not Recovered/Not Resolved]

NARRATIVE: CASE EVENT DATE: 201708
